FAERS Safety Report 4599451-4 (Version None)
Quarter: 2005Q1

REPORT INFORMATION
  Report Type: 
  Country: None (occurrence: None)
  Receive Date: 20050303
  Receipt Date: 20050211
  Transmission Date: 20050727
  Serious: Yes (Hospitalization, Other)
  Sender: FDA-Public Use
  Company Number: USA041082701

PATIENT
  Age: 57 Year
  Sex: Female
  Weight: 70 kg

DRUGS (12)
  1. FORTEO [Suspect]
     Indication: OSTEOPOROSIS
     Dosage: 20 UG DAY
     Dates: start: 20040917
  2. DARVOCET-N 100 [Concomitant]
  3. COZAAR [Concomitant]
  4. TRAZADONE (TRAZODONE) [Concomitant]
  5. ESTROPIPATE [Concomitant]
  6. ZOLOFT [Concomitant]
  7. LASIX [Concomitant]
  8. MIRALAX [Concomitant]
  9. DILTIAZEM [Concomitant]
  10. ALBUTEROL [Concomitant]
  11. NEURONTIN (GABAPENTIN PFIZER) [Concomitant]
  12. PHENERGAN [Concomitant]

REACTIONS (3)
  - ABDOMINAL PAIN UPPER [None]
  - GASTRITIS [None]
  - PHARMACEUTICAL PRODUCT COMPLAINT [None]
